FAERS Safety Report 4920537-6 (Version None)
Quarter: 2006Q1

REPORT INFORMATION
  Report Type: 
  Country: None (occurrence: None)
  Receive Date: 20060113
  Receipt Date: 20051011
  Transmission Date: 20060701
  Serious: No
  Sender: FDA-Public Use
  Company Number: 2005SP003463

PATIENT
  Age: 65 Year
  Sex: Female
  Weight: 77.1115 kg

DRUGS (5)
  1. LUNESTA [Suspect]
     Indication: INSOMNIA
     Dosage: HS;ORAL
     Route: 048
     Dates: start: 20050801, end: 20050801
  2. CENTRUM SILVER [Concomitant]
  3. ASCORBIC ACID [Concomitant]
  4. CALTRATE [Concomitant]
  5. DIURETICS [Concomitant]

REACTIONS (3)
  - OEDEMA [None]
  - PARADOXICAL DRUG REACTION [None]
  - RASH [None]
